FAERS Safety Report 8585124-X (Version None)
Quarter: 2012Q3

REPORT INFORMATION
  Report Type: 
  Country: None (occurrence: None)
  Receive Date: 20120810
  Receipt Date: 20120726
  Transmission Date: 20120928
  Serious: Yes (Disabling)
  Sender: FDA-Public Use
  Company Number: PHHY2012IL064296

PATIENT
  Sex: Female

DRUGS (3)
  1. BOTOX [Concomitant]
     Indication: MUCKLE-WELLS SYNDROME
  2. ILARIS [Suspect]
     Indication: MUCKLE-WELLS SYNDROME
     Dosage: 150 MG, UNK
     Route: 058
  3. ILARIS [Suspect]
     Dosage: 150 MG, UNK
     Route: 058
     Dates: start: 20120708

REACTIONS (1)
  - TINNITUS [None]
